FAERS Safety Report 25565087 (Version 1)
Quarter: 2025Q3

REPORT INFORMATION
  Report Type: Spontaneous
  Country: IR (occurrence: IR)
  Receive Date: 20250716
  Receipt Date: 20250716
  Transmission Date: 20251021
  Serious: Yes (Hospitalization, Other)
  Sender: RANBAXY
  Company Number: IR-SUN PHARMACEUTICAL INDUSTRIES INC-2025R1-516425

PATIENT
  Age: 32 Year
  Sex: Male

DRUGS (1)
  1. CLOZAPINE [Suspect]
     Active Substance: CLOZAPINE
     Indication: Schizophrenia
     Dosage: 300 MILLIGRAM, DAILY
     Route: 048

REACTIONS (2)
  - Obesity [Recovering/Resolving]
  - Therapy partial responder [Unknown]
